FAERS Safety Report 19967204 (Version 4)
Quarter: 2022Q1

REPORT INFORMATION
  Report Type: Spontaneous
  Country: US (occurrence: US)
  Receive Date: 20211019
  Receipt Date: 20220104
  Transmission Date: 20220423
  Serious: Yes (Other)
  Sender: FDA-Public Use
  Company Number: US-SA-SAC20211014000307

PATIENT
  Age: 14 Year
  Sex: Male

DRUGS (4)
  1. ALPROLIX [Suspect]
     Active Substance: EFTRENONACOG ALFA
     Indication: Factor IX deficiency
     Dosage: 4000 IU, ONCE A WEEK AND PRN
     Route: 042
     Dates: start: 20210914, end: 2021
  2. ALPROLIX [Suspect]
     Active Substance: EFTRENONACOG ALFA
     Indication: Factor IX deficiency
     Dosage: 4000 IU, ONCE A WEEK AND PRN
     Route: 042
     Dates: start: 20210914, end: 2021
  3. ALPROLIX [Suspect]
     Active Substance: EFTRENONACOG ALFA
     Dosage: 4000 IU, ONCE A WEEK AND PRN
     Route: 042
     Dates: start: 2021
  4. ALPROLIX [Suspect]
     Active Substance: EFTRENONACOG ALFA
     Dosage: 4000 IU, ONCE A WEEK AND PRN
     Route: 042
     Dates: start: 2021

REACTIONS (4)
  - Haemorrhage [Unknown]
  - Joint injury [Unknown]
  - Arthropathy [Unknown]
  - Influenza [Unknown]

NARRATIVE: CASE EVENT DATE: 20210101
